FAERS Safety Report 4281896-3 (Version None)
Quarter: 2004Q1

REPORT INFORMATION
  Report Type: 
  Country: None (occurrence: None)
  Receive Date: 20040112
  Receipt Date: 20031027
  Transmission Date: 20041129
  Serious: No
  Sender: FDA-Public Use
  Company Number: PHEH2003US09882

PATIENT
  Age: 69 Year
  Sex: Female

DRUGS (6)
  1. ELIDEL [Suspect]
     Indication: ECZEMA
     Dosage: BID, TOPICAL
     Route: 061
     Dates: start: 20030501
  2. DIOVAN [Concomitant]
  3. NEXIUM [Concomitant]
  4. (ESOMEPRAZOLE MAGNESIUM) [Concomitant]
  5. TRICOR [Concomitant]
  6. ASPIRIN [Concomitant]

REACTIONS (3)
  - APPLICATION SITE ERYTHEMA [None]
  - CONDITION AGGRAVATED [None]
  - DERMATITIS EXFOLIATIVE [None]
